FAERS Safety Report 11693525 (Version 4)
Quarter: 2016Q2

REPORT INFORMATION
  Report Type: Spontaneous
  Country: US (occurrence: US)
  Receive Date: 20151103
  Receipt Date: 20160503
  Transmission Date: 20160815
  Serious: Yes (Other)
  Sender: FDA-Public Use
  Company Number: US-MDT-ADR-2015-02067

PATIENT
  Age: 44 Year
  Sex: Female

DRUGS (3)
  1. DILAUDID [Suspect]
     Active Substance: HYDROMORPHONE HYDROCHLORIDE
     Route: 037
  2. BACLOFEN. [Suspect]
     Active Substance: BACLOFEN
     Route: 037
  3. MORPHINE [Suspect]
     Active Substance: MORPHINE
     Route: 037

REACTIONS (16)
  - Asthenia [Unknown]
  - Breakthrough pain [Unknown]
  - Neuralgia [Unknown]
  - Pain [Unknown]
  - Arachnoiditis [Unknown]
  - Neuropathy peripheral [Unknown]
  - Incontinence [Unknown]
  - Feeling abnormal [Unknown]
  - Hypoaesthesia [Unknown]
  - Candida infection [Unknown]
  - Muscle twitching [Unknown]
  - Infusion site mass [Unknown]
  - Adverse drug reaction [Unknown]
  - Excessive granulation tissue [Unknown]
  - Muscle spasms [Unknown]
  - No therapeutic response [Unknown]
